FAERS Safety Report 6384426-5 (Version None)
Quarter: 2009Q4

REPORT INFORMATION
  Report Type: 
  Country: None (occurrence: None)
  Receive Date: 20091001
  Receipt Date: 20090921
  Transmission Date: 20100525
  Serious: Yes (Other)
  Sender: FDA-Public Use
  Company Number: KR-PFIZER INC-2009272022

PATIENT
  Age: 77 Year

DRUGS (5)
  1. CELEBREX [Suspect]
     Indication: MUSCLE RUPTURE
     Dosage: 200 MG, 1X/DAY
     Route: 048
  2. ULTRACET [Concomitant]
     Indication: MUSCLE RUPTURE
     Route: 048
  3. DIOVAN HCT [Concomitant]
     Indication: MUSCLE RUPTURE
     Route: 048
  4. DILATREND [Concomitant]
     Indication: MUSCLE RUPTURE
     Route: 048
  5. ANPLAG [Concomitant]
     Indication: MUSCLE RUPTURE
     Route: 048

REACTIONS (7)
  - BLOOD PRESSURE DECREASED [None]
  - COLD SWEAT [None]
  - DISCOMFORT [None]
  - DIZZINESS [None]
  - GAIT DISTURBANCE [None]
  - PALLOR [None]
  - VISION BLURRED [None]
